FAERS Safety Report 6581259-1 (Version None)
Quarter: 2010Q1

REPORT INFORMATION
  Report Type: 
  Country: None (occurrence: None)
  Receive Date: 20100215
  Receipt Date: 20100208
  Transmission Date: 20100710
  Serious: Yes (Hospitalization)
  Sender: FDA-Public Use
  Company Number: NL-TEVA-223722ISR

PATIENT
  Age: 58 Year
  Sex: Male

DRUGS (5)
  1. LANSOPRAZOLE [Suspect]
  2. OMEPRAZOLE [Suspect]
     Indication: ABDOMINAL PAIN UPPER
  3. PANTOPRAZOLE [Suspect]
  4. CAPTOPRIL [Concomitant]
  5. SIMVASTATIN [Concomitant]

REACTIONS (3)
  - HYPOCALCAEMIA [None]
  - HYPOKALAEMIA [None]
  - HYPOMAGNESAEMIA [None]
